FAERS Safety Report 21721007 (Version 1)
Quarter: 2022Q4

REPORT INFORMATION
  Report Type: Spontaneous
  Country: US (occurrence: None)
  Receive Date: 20221213
  Receipt Date: 20221213
  Transmission Date: 20230113
  Serious: No
  Sender: FDA-Public Use
  Company Number: 2022A403533

PATIENT
  Age: 74 Year
  Sex: Female

DRUGS (1)
  1. PRILOSEC [Suspect]
     Active Substance: OMEPRAZOLE MAGNESIUM
     Indication: Antacid therapy
     Dosage: 2 CAPSUL, (1 CAPSULES AT A TIME, ACCIDENTALLY TOOK 2 TODAY)
     Route: 048
     Dates: start: 20221205

REACTIONS (2)
  - Feeling hot [Not Recovered/Not Resolved]
  - Accidental overdose [Unknown]

NARRATIVE: CASE EVENT DATE: 20221205
